FAERS Safety Report 4774901-9 (Version None)
Quarter: 2005Q3

REPORT INFORMATION
  Report Type: 
  Country: None (occurrence: None)
  Receive Date: 20050919
  Receipt Date: 20050906
  Transmission Date: 20060218
  Serious: Yes (Other)
  Sender: FDA-Public Use
  Company Number: 2004093596

PATIENT
  Age: 51 Year
  Sex: Male
  Weight: 88.7 kg

DRUGS (10)
  1. VIAGRA [Suspect]
     Indication: ILL-DEFINED DISORDER
  2. PROCRIT [Suspect]
     Indication: ANAEMIA
     Dosage: 40000 I.U. (40000 I.U., 1 IN 1 WK), SUBCUTANEOUS
     Route: 058
     Dates: start: 20031010, end: 20040423
  3. REGLAN [Concomitant]
  4. CELEXA [Concomitant]
  5. CITRUCEL (METHYLCELLULOSE) [Concomitant]
  6. PEGINTERFERON ALFA-2B (PEGINTERFERON ALFA-2B) [Suspect]
     Indication: HEPATITIS C
     Dosage: SUBCUTANEOUS
     Route: 058
     Dates: start: 20000801, end: 20040226
  7. RIBAVIRIN [Suspect]
     Indication: HEPATITIS C
     Dosage: ORAL
     Route: 048
     Dates: start: 20000801, end: 20040226
  8. MULTIVITAMIN [Concomitant]
  9. HYDROCHLOROTHIAZIDE [Concomitant]
  10. PROCARDIA [Concomitant]

REACTIONS (15)
  - ALANINE AMINOTRANSFERASE INCREASED [None]
  - ANTI-ERYTHROPOIETIN ANTIBODY POSITIVE [None]
  - APLASIA PURE RED CELL [None]
  - ASPARTATE AMINOTRANSFERASE INCREASED [None]
  - BONE MARROW DEPRESSION [None]
  - CONDITION AGGRAVATED [None]
  - DEPRESSION [None]
  - DISEASE RECURRENCE [None]
  - DRUG LEVEL INCREASED [None]
  - HAEMOLYSIS [None]
  - HEPATITIS C [None]
  - HYPERTENSION [None]
  - INJECTION SITE SWELLING [None]
  - SYNCOPE [None]
  - THERAPEUTIC RESPONSE DECREASED [None]
